FAERS Safety Report 10181574 (Version 4)
Quarter: 2015Q2

REPORT INFORMATION
  Report Type: Spontaneous
  Country: FR (occurrence: FR)
  Receive Date: 20140519
  Receipt Date: 20150407
  Transmission Date: 20150821
  Serious: Yes (Life-Threatening, Hospitalization)
  Sender: FDA-Public Use
  Company Number: FR-PFIZER INC-2014131427

PATIENT
  Age: 70 Year
  Sex: Male

DRUGS (11)
  1. CIBADREX [Concomitant]
     Active Substance: BENAZEPRIL HYDROCHLORIDE
  2. TENORMIN [Concomitant]
     Active Substance: ATENOLOL
  3. DEDROGYL [Concomitant]
     Active Substance: CALCIFEDIOL
  4. INLYTA [Suspect]
     Active Substance: AXITINIB
     Indication: METASTATIC RENAL CELL CARCINOMA
     Dosage: 5 MG, 2X/DAY
     Route: 048
     Dates: start: 20140310, end: 20140405
  5. ALLOPURINOL. [Concomitant]
     Active Substance: ALLOPURINOL
  6. CYSTINE B6 [Concomitant]
  7. KARDEGIC [Concomitant]
     Active Substance: ASPIRIN LYSINE
  8. GAVISCON [Concomitant]
     Active Substance: ALUMINUM HYDROXIDE\MAGNESIUM CARBONATE
  9. PRAVASTATIN [Concomitant]
     Active Substance: PRAVASTATIN\PRAVASTATIN SODIUM
  10. TARDYFERON [Concomitant]
     Active Substance: FERROUS SULFATE\FOLIC ACID
  11. ALPRAZOLAM. [Concomitant]
     Active Substance: ALPRAZOLAM

REACTIONS (1)
  - Posterior reversible encephalopathy syndrome [Recovering/Resolving]

NARRATIVE: CASE EVENT DATE: 20140405
